FAERS Safety Report 7883448-2 (Version None)
Quarter: 2011Q4

REPORT INFORMATION
  Report Type: 
  Country: None (occurrence: None)
  Receive Date: 20111102
  Receipt Date: 20111021
  Transmission Date: 20120403
  Serious: Yes (Other)
  Sender: FDA-Public Use
  Company Number: US-BAYER-2011-052586

PATIENT
  Sex: Female
  Weight: 158.73 kg

DRUGS (6)
  1. DARVOCET [Concomitant]
  2. YASMIN [Suspect]
     Indication: PRODUCT USED FOR UNKNOWN INDICATION
     Dosage: UNK
     Dates: start: 20040101, end: 20060101
  3. YAZ [Suspect]
     Indication: PRODUCT USED FOR UNKNOWN INDICATION
     Dosage: UNK
     Dates: start: 20040101, end: 20060101
  4. MULTI-VITAMINS [Concomitant]
  5. LOPRESSOR [Concomitant]
  6. MOTRIN [Concomitant]

REACTIONS (3)
  - PLACENTAL DISORDER [None]
  - INJURY [None]
  - PAIN [None]
